FAERS Safety Report 26127626 (Version 1)
Quarter: 2025Q4

REPORT INFORMATION
  Report Type: Report from Study
  Country: KR (occurrence: KR)
  Receive Date: 20251206
  Receipt Date: 20251206
  Transmission Date: 20260117
  Serious: Yes (Other)
  Sender: ALEXION PHARMACEUTICALS
  Company Number: KR-ASTRAZENECA-202512GLO002339KR

PATIENT
  Sex: Female
  Weight: 60.8 kg

DRUGS (16)
  1. DURVALUMAB [Suspect]
     Active Substance: DURVALUMAB
     Indication: Endometrial cancer
     Dosage: 1120 MILLIGRAM
  2. OLAPARIB [Suspect]
     Active Substance: OLAPARIB
     Indication: Endometrial cancer
     Route: 065
  3. Akynzeo [Concomitant]
     Indication: Prophylaxis
     Dosage: UNK
  4. Peniramin [Concomitant]
     Indication: Prophylaxis
     Dosage: UNK
     Dates: start: 20250828, end: 20250828
  5. DEXAMETHASONE [Concomitant]
     Active Substance: DEXAMETHASONE
     Indication: Prophylaxis
     Dosage: UNK
  6. CEFAZOLIN SODIUM [Concomitant]
     Active Substance: CEFAZOLIN SODIUM
     Indication: Prophylaxis
     Dosage: UNK
     Dates: start: 20250828, end: 20250828
  7. MAGNESIUM [Concomitant]
     Active Substance: MAGNESIUM
     Indication: Prophylaxis
     Dosage: UNK
  8. RAMOSETRON HYDROCHLORIDE [Concomitant]
     Active Substance: RAMOSETRON HYDROCHLORIDE
     Indication: Prophylaxis
     Dosage: UNK
     Dates: start: 20250829, end: 20250830
  9. METOCLOPRAMIDE HYDROCHLORIDE [Concomitant]
     Active Substance: METOCLOPRAMIDE HYDROCHLORIDE
     Indication: Prophylaxis
     Dosage: UNK
     Dates: start: 20250829, end: 20250902
  10. TYLENOL [Concomitant]
     Active Substance: ACETAMINOPHEN
     Indication: Prophylaxis
     Dosage: UNK
  11. PHENIRAMINE [Concomitant]
     Active Substance: PHENIRAMINE
     Indication: Prophylaxis
     Dosage: UNK
     Dates: start: 20250829, end: 20250905
  12. FREAMINE III NOS [Concomitant]
     Active Substance: AMINO ACIDS
     Indication: Prophylaxis
     Dosage: UNK
  13. FERINJECT [Concomitant]
     Active Substance: FERRIC CARBOXYMALTOSE
     Indication: Prophylaxis
     Dosage: UNK
     Dates: start: 20250910, end: 20250910
  14. Rolontis [Concomitant]
     Indication: Prophylaxis
     Dosage: UNK
     Dates: start: 20250924, end: 20250924
  15. Dulackhan [Concomitant]
     Indication: Prophylaxis
     Dosage: UNK
  16. LAFUTIDINE [Concomitant]
     Active Substance: LAFUTIDINE
     Indication: Prophylaxis
     Dosage: UNK
     Dates: start: 20251022, end: 20251024

REACTIONS (2)
  - Cholecystitis chronic [Recovering/Resolving]
  - Hyperplastic cholecystopathy [Recovering/Resolving]

NARRATIVE: CASE EVENT DATE: 20251106
